FAERS Safety Report 22116854 (Version 3)
Quarter: 2023Q2

REPORT INFORMATION
  Report Type: Spontaneous
  Country: BR (occurrence: BR)
  Receive Date: 20230320
  Receipt Date: 20230425
  Transmission Date: 20230722
  Serious: Yes (Hospitalization)
  Sender: FDA-Public Use
  Company Number: BR-VERTEX PHARMACEUTICALS-2023-003822

PATIENT
  Age: 41 Year
  Sex: Female

DRUGS (1)
  1. TRIKAFTA [Suspect]
     Active Substance: ELEXACAFTOR\IVACAFTOR\TEZACAFTOR
     Indication: Cystic fibrosis
     Dosage: UNKNOWN DOSAGE REGIMEN
     Route: 048
     Dates: start: 2022

REACTIONS (15)
  - Pulmonary embolism [Recovered/Resolved]
  - Pneumonia [Recovering/Resolving]
  - Vasculitis [Recovered/Resolved]
  - Infection [Recovered/Resolved]
  - Early satiety [Unknown]
  - Decreased appetite [Unknown]
  - Fatigue [Unknown]
  - Haemoptysis [Unknown]
  - Lung disorder [Recovering/Resolving]
  - Bacterial infection [Unknown]
  - Anxiety [Unknown]
  - Sputum discoloured [Unknown]
  - Sputum purulent [Unknown]
  - Weight decreased [Recovered/Resolved]
  - Drug ineffective [Unknown]

NARRATIVE: CASE EVENT DATE: 20230201
